FAERS Safety Report 8520742-6 (Version None)
Quarter: 2012Q3

REPORT INFORMATION
  Report Type: 
  Country: None (occurrence: None)
  Receive Date: 20120719
  Receipt Date: 20120711
  Transmission Date: 20120928
  Serious: Yes (Other)
  Sender: FDA-Public Use
  Company Number: US-BAYER-2012-070941

PATIENT
  Age: 59 Year
  Sex: Female

DRUGS (12)
  1. VITAMIN B-12 [Concomitant]
     Dosage: 2,500 MCG DAILY
     Route: 060
  2. PAXIL [Concomitant]
     Dosage: 10 MG, OM
     Route: 048
  3. INFLUENZA VACCINE [Concomitant]
     Dosage: UNK
     Dates: start: 20120109
  4. ACCUPRIL [Concomitant]
     Dosage: 1 TABLET DAILY
     Route: 048
  5. VITAMIN D [Concomitant]
     Dosage: 5000IU DAILY
     Route: 048
  6. ASPIRIN [Suspect]
  7. TENORMIN [Concomitant]
     Dosage: 0.5 TABLET DAILY
     Route: 048
  8. DIPROLENE [Concomitant]
     Dosage: UNK UNK, BID
     Route: 061
  9. ROFLUMILAST [Concomitant]
     Dosage: 500MCG DAILY
     Route: 048
  10. PROVENTIL-HFA [Concomitant]
     Dosage: INHALE 2 PUFFS INTO LUNGS 4 TIMES DAILY
  11. SPIRIVA [Concomitant]
     Dosage: 18MCG DAILY
  12. ALDACTONE [Concomitant]
     Indication: OEDEMA
     Dosage: 50 MG DAILY
     Route: 048

REACTIONS (2)
  - DRUG HYPERSENSITIVITY [None]
  - DYSPNOEA [None]
